FAERS Safety Report 5173441-5 (Version None)
Quarter: 2006Q4

REPORT INFORMATION
  Report Type: 
  Country: None (occurrence: None)
  Receive Date: 20061208
  Receipt Date: 20061208
  Transmission Date: 20070319
  Serious: Yes (Hospitalization)
  Sender: FDA-Public Use
  Company Number: None

PATIENT
  Sex: Female
  Weight: 69.3 kg

DRUGS (10)
  1. BEVACIZUMAB (GENENTECH)  10MG/KG [Suspect]
     Indication: GLIOBLASTOMA MULTIFORME
     Dosage: 698MG  QOW   IV
     Route: 042
     Dates: start: 20060922
  2. BEVACIZUMAB (GENENTECH)  10MG/KG [Suspect]
     Indication: GLIOBLASTOMA MULTIFORME
     Dosage: 698MG  QOW   IV
     Route: 042
     Dates: start: 20061006
  3. BEVACIZUMAB (GENENTECH)  10MG/KG [Suspect]
     Indication: GLIOBLASTOMA MULTIFORME
     Dosage: 698MG  QOW   IV
     Route: 042
     Dates: start: 20061020
  4. IRINOTECAN (PFIZER)  255MG/M2 [Suspect]
     Indication: GLIOBLASTOMA MULTIFORME
     Dosage: 450MG  QOW  IV
     Route: 042
     Dates: start: 20060922
  5. IRINOTECAN (PFIZER)  255MG/M2 [Suspect]
     Indication: GLIOBLASTOMA MULTIFORME
     Dosage: 450MG  QOW  IV
     Route: 042
     Dates: start: 20061006
  6. IRINOTECAN (PFIZER)  255MG/M2 [Suspect]
     Indication: GLIOBLASTOMA MULTIFORME
     Dosage: 450MG  QOW  IV
     Route: 042
     Dates: start: 20061020
  7. CARBATROL [Concomitant]
  8. PHENOBARBITAL TAB [Concomitant]
  9. BONE CALCIUM [Concomitant]
  10. LISINOPRIL [Concomitant]

REACTIONS (6)
  - GRAND MAL CONVULSION [None]
  - HYPERTENSION [None]
  - HYPONATRAEMIA [None]
  - NAUSEA [None]
  - POSTICTAL PARALYSIS [None]
  - VOMITING [None]
